FAERS Safety Report 20844038 (Version 1)
Quarter: 2022Q2

REPORT INFORMATION
  Report Type: Spontaneous
  Country: US (occurrence: None)
  Receive Date: 20220518
  Receipt Date: 20220518
  Transmission Date: 20220720
  Serious: Yes (Hospitalization)
  Sender: FDA-Public Use
  Company Number: US-FRESENIUS KABI-FK202205641

PATIENT
  Age: 59 Year
  Sex: Male
  Weight: 88.9 kg

DRUGS (6)
  1. CISPLATIN [Suspect]
     Active Substance: CISPLATIN
     Indication: Squamous cell carcinoma of head and neck
     Dosage: Q3W
     Route: 042
     Dates: start: 20220216
  2. PALBOCICLIB [Suspect]
     Active Substance: PALBOCICLIB
     Indication: Squamous cell carcinoma of head and neck
     Dosage: QD DAYS 1-21 OF 28
     Route: 048
     Dates: start: 20211222, end: 20220215
  3. LISINOPRIL [Concomitant]
     Active Substance: LISINOPRIL
     Indication: Hypertension
     Dosage: ONGOING
  4. ATORVASTATIN CALCIUM [Concomitant]
     Active Substance: ATORVASTATIN CALCIUM
     Indication: Hyperlipidaemia
     Dosage: ONGOING
  5. OXYCODONE HYDROCHLORIDE [Concomitant]
     Active Substance: OXYCODONE HYDROCHLORIDE
     Indication: Pain in jaw
     Dosage: ONGOING
     Dates: start: 20211216
  6. FENTANYL [Concomitant]
     Active Substance: FENTANYL
     Indication: Pain in jaw
     Dosage: ONGOING
     Dates: start: 20210112

REACTIONS (1)
  - Blood creatinine increased [Not Recovered/Not Resolved]

NARRATIVE: CASE EVENT DATE: 20220223
